FAERS Safety Report 4628169-4 (Version None)
Quarter: 2005Q2

REPORT INFORMATION
  Report Type: 
  Country: None (occurrence: None)
  Receive Date: 20050401
  Receipt Date: 20050321
  Transmission Date: 20051028
  Serious: Yes (Other)
  Sender: FDA-Public Use
  Company Number: 2005-DE-01140GD

PATIENT
  Age: 33 Year
  Sex: Male

DRUGS (3)
  1. NEVIRAPINE [Suspect]
     Indication: HIV INFECTION
     Dates: start: 20000101, end: 20000501
  2. ZIDOVUDINE [Suspect]
     Indication: HIV INFECTION
     Dates: start: 20000101, end: 20000501
  3. LAMIVUDINE [Suspect]
     Indication: HIV INFECTION
     Dates: start: 20000101, end: 20000501

REACTIONS (2)
  - HEPATITIS C RNA NEGATIVE [None]
  - HEPATOTOXICITY [None]
